FAERS Safety Report 17323589 (Version 1)
Quarter: 2020Q1

REPORT INFORMATION
  Report Type: Report from Study
  Country: US (occurrence: US)
  Receive Date: 20200127
  Receipt Date: 20200127
  Transmission Date: 20200409
  Serious: Yes (Hospitalization)
  Sender: FDA-Public Use
  Company Number: US-ROCHE-2523493

PATIENT
  Age: 64 Year
  Sex: Male
  Weight: 90.8 kg

DRUGS (2)
  1. OCREVUS [Suspect]
     Active Substance: OCRELIZUMAB
     Indication: MULTIPLE SCLEROSIS
     Route: 042
     Dates: start: 20180101
  2. TIZANIDINE. [Concomitant]
     Active Substance: TIZANIDINE
     Indication: MUSCLE SPASMS
     Dosage: 1/2 OF 4 MG TAB EVERY 2 HR (12 TO 16 MG DAILY)
     Route: 048

REACTIONS (7)
  - Pyrexia [Recovered/Resolved]
  - Fungal infection [Unknown]
  - Neurogenic bladder [Unknown]
  - Cystitis [Unknown]
  - Disorientation [Recovered/Resolved]
  - Systemic inflammatory response syndrome [Unknown]
  - Asthenia [Not Recovered/Not Resolved]

NARRATIVE: CASE EVENT DATE: 20200105
